FAERS Safety Report 4832042-6 (Version None)
Quarter: 2005Q4

REPORT INFORMATION
  Report Type: 
  Country: None (occurrence: None)
  Receive Date: 20051116
  Receipt Date: 20051102
  Transmission Date: 20060501
  Serious: Yes (Death)
  Sender: FDA-Public Use
  Company Number: 05-06-1043

PATIENT
  Age: 35 Year
  Sex: Male
  Weight: 98.4306 kg

DRUGS (2)
  1. CLOZAPINE [Suspect]
     Indication: SCHIZOAFFECTIVE DISORDER
     Dosage: 200-500 MG QD, ORAL
     Route: 048
     Dates: start: 20000701, end: 20050601
  2. LITHIUM [Concomitant]

REACTIONS (5)
  - BLOOD SODIUM INCREASED [None]
  - CONVULSION [None]
  - DEHYDRATION [None]
  - HEAT STROKE [None]
  - LOSS OF CONSCIOUSNESS [None]
